FAERS Safety Report 6744508-2 (Version None)
Quarter: 2010Q2

REPORT INFORMATION
  Report Type: 
  Country: None (occurrence: None)
  Receive Date: 20100527
  Receipt Date: 20100517
  Transmission Date: 20101027
  Serious: Yes (Hospitalization)
  Sender: FDA-Public Use
  Company Number: US-BAXTER-2010BH003139

PATIENT
  Sex: Male

DRUGS (3)
  1. DIANEAL [Suspect]
     Indication: PERITONEAL DIALYSIS
     Route: 033
     Dates: end: 20100201
  2. DIANEAL [Suspect]
     Route: 033
     Dates: start: 20100201
  3. UNSPECIFIED PAIN MEDICATION [Suspect]
     Indication: PAIN
     Route: 065
     Dates: start: 20100201

REACTIONS (4)
  - ABDOMINAL DISTENSION [None]
  - CONFUSIONAL STATE [None]
  - HICCUPS [None]
  - HIP FRACTURE [None]
